FAERS Safety Report 9387600 (Version 4)
Quarter: 2013Q4

REPORT INFORMATION
  Report Type: Report from Study
  Country: CA (occurrence: CA)
  Receive Date: 20130708
  Receipt Date: 20131108
  Transmission Date: 20140711
  Serious: Yes (Hospitalization, Other)
  Sender: FDA-Public Use
  Company Number: PHHY2013CA071888

PATIENT
  Age: 78 Year
  Sex: Male

DRUGS (1)
  1. EXELON PATCH [Suspect]
     Indication: DEMENTIA ALZHEIMER^S TYPE
     Dosage: 9.5 MG (PATCH 10 CM2), DAILY
     Route: 062
     Dates: start: 20130507

REACTIONS (5)
  - Cardiac disorder [Unknown]
  - Balance disorder [Unknown]
  - Memory impairment [Unknown]
  - Application site erythema [Unknown]
  - Application site pruritus [Unknown]
